FAERS Safety Report 8202451-6 (Version None)
Quarter: 2012Q1

REPORT INFORMATION
  Report Type: 
  Country: None (occurrence: None)
  Receive Date: 20120312
  Receipt Date: 20120305
  Transmission Date: 20120608
  Serious: Yes (Hospitalization)
  Sender: FDA-Public Use
  Company Number: PT-JNJFOC-20120302788

PATIENT
  Age: 46 Year
  Sex: Male

DRUGS (4)
  1. HALOPERIDOL [Suspect]
     Indication: AGITATION
     Route: 030
  2. ACETAMINOPHEN [Concomitant]
     Indication: NEUROLEPTIC MALIGNANT SYNDROME
     Route: 065
  3. DANTROLENE SODIUM [Concomitant]
     Indication: NEUROLEPTIC MALIGNANT SYNDROME
     Route: 065
  4. CISORDINOL [Suspect]
     Indication: AGITATION
     Route: 030

REACTIONS (2)
  - NEUROLEPTIC MALIGNANT SYNDROME [None]
  - HEPATIC FAILURE [None]
